FAERS Safety Report 6447788-6 (Version None)
Quarter: 2009Q4

REPORT INFORMATION
  Report Type: 
  Country: None (occurrence: None)
  Receive Date: 20091120
  Receipt Date: 20091112
  Transmission Date: 20100525
  Serious: Yes (Hospitalization)
  Sender: FDA-Public Use
  Company Number: FR-TEVA-215535ISR

PATIENT
  Sex: Male
  Weight: 85 kg

DRUGS (16)
  1. FLUOROURACIL [Suspect]
     Indication: COLORECTAL CANCER
     Dosage: COURSES 1 TO 6
     Dates: start: 20040405
  2. FLUOROURACIL [Suspect]
     Dosage: COURSE 7
     Route: 040
     Dates: start: 20040702, end: 20090702
  3. FLUOROURACIL [Suspect]
     Dosage: COURSE 7
     Route: 041
     Dates: start: 20040702, end: 20090703
  4. FOLINIC ACID [Suspect]
     Indication: COLORECTAL CANCER
     Dosage: COURSES 1 TO 6
     Dates: start: 20040405
  5. FOLINIC ACID [Suspect]
     Dosage: COURSE 7
     Dates: start: 20040702, end: 20090702
  6. ATORVASTATIN CALCIUM [Concomitant]
  7. AMLODIPINE BESILATE [Concomitant]
  8. LEVOTHYROXINE SODIUM [Concomitant]
  9. GLYCERYL TRINITRATE [Concomitant]
  10. VALSARTAN AND HYDROCHLOROTHIAZIDE [Concomitant]
  11. SOTALOL HCL [Concomitant]
  12. NICORANDIL [Concomitant]
  13. NICORANDIL [Concomitant]
  14. NAFTAZONE [Concomitant]
  15. CLOPIDOGREL [Concomitant]
  16. MEQUINOL [Concomitant]

REACTIONS (4)
  - ASTHENIA [None]
  - CHEST PAIN [None]
  - DYSPNOEA [None]
  - TACHYCARDIA [None]
